FAERS Safety Report 11082115 (Version 2)
Quarter: 2015Q2

REPORT INFORMATION
  Report Type: Spontaneous
  Country: US (occurrence: US)
  Receive Date: 20150501
  Receipt Date: 20150506
  Transmission Date: 20150821
  Serious: Yes (Other)
  Sender: FDA-Public Use
  Company Number: US-GLAXOSMITHKLINE-US2015GSK058141

PATIENT
  Age: 60 Year

DRUGS (6)
  1. CARMUSTINE [Suspect]
     Active Substance: CARMUSTINE
     Indication: CHRONIC LYMPHOCYTIC LEUKAEMIA
     Dosage: UNK, SINGLE
     Route: 042
     Dates: start: 20110302, end: 20110302
  2. CYTARABINE. [Suspect]
     Active Substance: CYTARABINE
     Indication: CHRONIC LYMPHOCYTIC LEUKAEMIA
     Dosage: 4 DF, U
     Route: 042
     Dates: start: 20110303, end: 20110306
  3. MELPHALAN [Suspect]
     Active Substance: MELPHALAN
     Indication: CHRONIC LYMPHOCYTIC LEUKAEMIA
     Dosage: UNK, SINGLE
     Route: 048
     Dates: start: 20110307, end: 20110307
  4. BICNU [Suspect]
     Active Substance: CARMUSTINE
     Indication: CHRONIC LYMPHOCYTIC LEUKAEMIA
     Dosage: UNK, SINGLE
     Route: 042
     Dates: start: 20110302, end: 20110302
  5. RITUXAN [Suspect]
     Active Substance: RITUXIMAB
     Indication: CHRONIC LYMPHOCYTIC LEUKAEMIA
     Dosage: UNK, Z
     Route: 042
     Dates: start: 20110302, end: 20110307
  6. ETOPOSIDE. [Suspect]
     Active Substance: ETOPOSIDE
     Indication: CHRONIC LYMPHOCYTIC LEUKAEMIA
     Dosage: 4 DF, U
     Route: 042
     Dates: start: 20110303, end: 20110306

REACTIONS (3)
  - Renal failure [Unknown]
  - Pneumonia [Unknown]
  - Hospitalisation [Unknown]

NARRATIVE: CASE EVENT DATE: 20110301
